FAERS Safety Report 6782562-2 (Version None)
Quarter: 2010Q2

REPORT INFORMATION
  Report Type: 
  Country: None (occurrence: None)
  Receive Date: 20100621
  Receipt Date: 20100611
  Transmission Date: 20101027
  Serious: Yes (Other)
  Sender: FDA-Public Use
  Company Number: US-PFIZER INC-2010074382

PATIENT
  Sex: Male
  Weight: 73 kg

DRUGS (12)
  1. LIPITOR [Suspect]
     Indication: BLOOD CHOLESTEROL INCREASED
     Dosage: 40 MG, DAILY
     Route: 048
  2. METOPROLOL [Concomitant]
     Dosage: UNK
  3. NITROGLYCERIN [Concomitant]
     Dosage: UNK
  4. FLOMAX [Concomitant]
     Dosage: UNK
  5. PROSCAR [Concomitant]
     Dosage: UNK
  6. COZAAR [Concomitant]
     Dosage: UNK
  7. FOLIC ACID [Concomitant]
     Dosage: UNK
  8. ACETYLSALICYLIC ACID [Concomitant]
     Dosage: UNK
  9. FISH OIL [Concomitant]
     Dosage: UNK
  10. COENZYME Q10 [Concomitant]
     Dosage: UNK
  11. MUCINEX [Concomitant]
     Dosage: UNK
  12. FLUNISOLIDE [Concomitant]
     Dosage: UNK
     Route: 045

REACTIONS (1)
  - ALLERGY TEST POSITIVE [None]
